FAERS Safety Report 20818220 (Version 1)
Quarter: 2022Q2

REPORT INFORMATION
  Report Type: Spontaneous
  Country: US (occurrence: None)
  Receive Date: 20220511
  Receipt Date: 20220511
  Transmission Date: 20220721
  Serious: Yes (Life-Threatening, Other)
  Sender: FDA-Public Use
  Company Number: None

PATIENT
  Age: 63 Year
  Sex: Female
  Weight: 64.86 kg

DRUGS (2)
  1. RAMELTEON [Suspect]
     Active Substance: RAMELTEON
     Indication: Insomnia
     Dosage: OTHER QUANTITY : 4-8MG;?FREQUENCY : ONCE;?
     Route: 048
     Dates: start: 20220301
  2. ROSUVASTATIN [Suspect]
     Active Substance: ROSUVASTATIN
     Indication: Blood cholesterol increased
     Dosage: FREQUENCY : ONCE;?
     Route: 048
     Dates: start: 20210415

REACTIONS (5)
  - Asthenia [None]
  - Diarrhoea [None]
  - Insomnia [None]
  - Confusional state [None]
  - Blood bilirubin increased [None]

NARRATIVE: CASE EVENT DATE: 20220506
